FAERS Safety Report 17088123 (Version 2)
Quarter: 2019Q4

REPORT INFORMATION
  Report Type: Report from Study
  Country: CA (occurrence: CA)
  Receive Date: 20191128
  Receipt Date: 20191203
  Transmission Date: 20200122
  Serious: Yes (Death, Hospitalization, Other)
  Sender: FDA-Public Use
  Company Number: CA-PFIZER INC-2019513480

PATIENT
  Sex: Female
  Weight: 73 kg

DRUGS (9)
  1. RANITIDINE. [Concomitant]
     Active Substance: RANITIDINE
     Indication: PROPHYLAXIS
     Dosage: 150 MG, UNK
  2. ZOPICLONE [Concomitant]
     Active Substance: ZOPICLONE
     Indication: DEPRESSION
     Dosage: 7.5 MG, UNK
  3. IMMUNE GLOBULIN [Concomitant]
     Indication: THROMBOCYTOPENIA
     Dosage: 80 MG, UNK
  4. RED BLOOD CELLS [Concomitant]
     Active Substance: HUMAN RED BLOOD CELL
  5. AFINITOR [Suspect]
     Active Substance: EVEROLIMUS
     Indication: BREAST CANCER
     Dosage: 5 MG, UNK
  6. DENOSUMAB [Concomitant]
     Active Substance: DENOSUMAB
     Indication: PROPHYLAXIS
     Dosage: 30 MG, UNK
  7. HYDROMORPHONE [Concomitant]
     Active Substance: HYDROMORPHONE
     Indication: PAIN
     Dosage: 2 MG, UNK
  8. EXEMESTANE. [Suspect]
     Active Substance: EXEMESTANE
     Dosage: 25 MG, UNK
  9. CITALOPRAM HYDROBROMIDE. [Concomitant]
     Active Substance: CITALOPRAM HYDROBROMIDE
     Indication: DEPRESSION
     Dosage: 10 MG, UNK

REACTIONS (13)
  - Diarrhoea [Fatal]
  - Sepsis [Fatal]
  - Peripheral swelling [Fatal]
  - Haemoglobin decreased [Fatal]
  - Cellulitis staphylococcal [Fatal]
  - Memory impairment [Fatal]
  - Erythema [Fatal]
  - Contusion [Fatal]
  - Dementia [Fatal]
  - Plasma cell myeloma [Fatal]
  - Thrombocytopenia [Fatal]
  - Pancytopenia [Fatal]
  - Second primary malignancy [Fatal]
